FAERS Safety Report 15232057 (Version 1)
Quarter: 2018Q3

REPORT INFORMATION
  Report Type: Spontaneous
  Country: US (occurrence: US)
  Receive Date: 20180802
  Receipt Date: 20180802
  Transmission Date: 20181010
  Serious: No
  Sender: FDA-Public Use
  Company Number: US-PFIZER INC-2018308791

PATIENT
  Age: 71 Year
  Sex: Male
  Weight: 118 kg

DRUGS (3)
  1. GABAPENTIN. [Suspect]
     Active Substance: GABAPENTIN
     Indication: BACK INJURY
     Dosage: UNK
     Dates: start: 2005
  2. OXYCODONE [Concomitant]
     Active Substance: OXYCODONE
     Dosage: 10 MG, 4X/DAY
     Route: 048
  3. OXYCODONE [Concomitant]
     Active Substance: OXYCODONE
     Indication: BACK PAIN
     Dosage: 7.5 MG, 4X/DAY
     Route: 048
     Dates: start: 1989

REACTIONS (4)
  - Weight increased [Unknown]
  - Malaise [Unknown]
  - Product use in unapproved indication [Unknown]
  - Anger [Unknown]

NARRATIVE: CASE EVENT DATE: 2005
